FAERS Safety Report 7197104-X (Version None)
Quarter: 2010Q4

REPORT INFORMATION
  Report Type: 
  Country: None (occurrence: None)
  Receive Date: 20101224
  Receipt Date: 20101210
  Transmission Date: 20110411
  Serious: Yes (Other)
  Sender: FDA-Public Use
  Company Number: PHHY2010NL84279

PATIENT
  Sex: Male

DRUGS (2)
  1. ZOMETA [Suspect]
     Indication: PROSTATE CANCER METASTATIC
     Dosage: 4 MG/5 ML
  2. ZOMETA [Suspect]
     Dosage: 4 MG/5 ML
     Dates: start: 20101130

REACTIONS (1)
  - GENERAL PHYSICAL HEALTH DETERIORATION [None]
